FAERS Safety Report 10411998 (Version 1)
Quarter: 2014Q3

REPORT INFORMATION
  Report Type: Spontaneous
  Country: VE (occurrence: VE)
  Receive Date: 20140827
  Receipt Date: 20140827
  Transmission Date: 20150326
  Serious: Yes (Hospitalization)
  Sender: FDA-Public Use
  Company Number: PHHY2014VE106533

PATIENT
  Age: 51 Year
  Sex: Female

DRUGS (2)
  1. CATAFLAM [Suspect]
     Active Substance: DICLOFENAC POTASSIUM
     Indication: PROCEDURAL PAIN
     Dosage: UNK UKN, UNK
  2. PROFENID [Suspect]
     Active Substance: KETOPROFEN
     Indication: PROCEDURAL PAIN
     Dosage: UNK UKN, UNK

REACTIONS (5)
  - Drug interaction [Unknown]
  - Blood pressure increased [Unknown]
  - Hypertension [Unknown]
  - Blood disorder [Unknown]
  - Epistaxis [Unknown]
